FAERS Safety Report 6791140-0 (Version None)
Quarter: 2010Q2

REPORT INFORMATION
  Report Type: 
  Country: None (occurrence: None)
  Receive Date: 20100623
  Receipt Date: 20100623
  Transmission Date: 20101027
  Serious: Yes (Other)
  Sender: FDA-Public Use
  Company Number: None

PATIENT
  Age: 43 Year
  Sex: Female
  Weight: 62.5964 kg

DRUGS (2)
  1. CYCLOBENZAPRINE [Suspect]
     Indication: KYPHOSIS
     Dosage: 10MG 3 TIMES A DAY PO
     Route: 048
     Dates: start: 20081201, end: 20100621
  2. CYCLOBENZAPRINE [Suspect]
     Indication: THORACIC OUTLET SYNDROME
     Dosage: 10MG 3 TIMES A DAY PO
     Route: 048
     Dates: start: 20081201, end: 20100621

REACTIONS (25)
  - ABDOMINAL PAIN UPPER [None]
  - CARDIAC DISORDER [None]
  - CHEST DISCOMFORT [None]
  - COGNITIVE DISORDER [None]
  - CONFUSIONAL STATE [None]
  - CONSTIPATION [None]
  - COORDINATION ABNORMAL [None]
  - DISORIENTATION [None]
  - DIZZINESS [None]
  - DRY MOUTH [None]
  - DYSPNOEA [None]
  - FATIGUE [None]
  - HEART RATE INCREASED [None]
  - HYPERHIDROSIS [None]
  - IMPAIRED WORK ABILITY [None]
  - INSOMNIA [None]
  - MEMORY IMPAIRMENT [None]
  - MUSCLE TWITCHING [None]
  - MUSCULAR WEAKNESS [None]
  - NAUSEA [None]
  - PRESYNCOPE [None]
  - RASH [None]
  - SPEECH DISORDER [None]
  - TINNITUS [None]
  - VISUAL IMPAIRMENT [None]
